FAERS Safety Report 22913335 (Version 2)
Quarter: 2023Q4

REPORT INFORMATION
  Report Type: Spontaneous
  Country: US (occurrence: US)
  Receive Date: 20230906
  Receipt Date: 20231007
  Transmission Date: 20240110
  Serious: No
  Sender: FDA-Public Use
  Company Number: US-TAKEDA-2023TUS086434

PATIENT
  Age: 54 Year
  Sex: Male
  Weight: 78.912 kg

DRUGS (9)
  1. GAMMAGARD [Suspect]
     Active Substance: HUMAN IMMUNOGLOBULIN G
     Indication: Multiple sclerosis
     Dosage: UNK
     Route: 065
     Dates: start: 202303
  2. GAMMAGARD [Suspect]
     Active Substance: HUMAN IMMUNOGLOBULIN G
     Dosage: UNK UNK, Q4WEEKS
     Route: 042
     Dates: start: 20230423
  3. GAMMAGARD [Suspect]
     Active Substance: HUMAN IMMUNOGLOBULIN G
     Dosage: 1 GRAM
     Route: 042
     Dates: start: 20230703
  4. GAMMAGARD [Suspect]
     Active Substance: HUMAN IMMUNOGLOBULIN G
     Dosage: 20 GRAM
     Route: 042
  5. GAMMAGARD [Suspect]
     Active Substance: HUMAN IMMUNOGLOBULIN G
     Dosage: 1 GRAM
     Route: 042
     Dates: start: 202308
  6. GAMMAGARD [Suspect]
     Active Substance: HUMAN IMMUNOGLOBULIN G
     Dosage: 20 GRAM
     Route: 042
  7. ACETAMINOPHEN [Concomitant]
     Active Substance: ACETAMINOPHEN
     Indication: Premedication
     Dosage: 975 MILLIGRAM
     Route: 048
  8. DIPHENHYDRAMINE [Concomitant]
     Active Substance: DIPHENHYDRAMINE
     Indication: Premedication
     Dosage: 25 MILLIGRAM
     Route: 042
  9. METHYLPREDNISOLONE [Concomitant]
     Active Substance: METHYLPREDNISOLONE
     Indication: Premedication
     Dosage: 60 MILLIGRAM
     Route: 042

REACTIONS (3)
  - Dry skin [Not Recovered/Not Resolved]
  - Hiccups [Not Recovered/Not Resolved]
  - Rash maculo-papular [Not Recovered/Not Resolved]

NARRATIVE: CASE EVENT DATE: 20230701
